APPROVED DRUG PRODUCT: DAYPRO ALTA
Active Ingredient: OXAPROZIN POTASSIUM
Strength: 600MG
Dosage Form/Route: TABLET;ORAL
Application: N020776 | Product #001
Applicant: PFIZER INC
Approved: Oct 17, 2002 | RLD: No | RS: No | Type: DISCN